FAERS Safety Report 4517585-7 (Version None)
Quarter: 2004Q4

REPORT INFORMATION
  Report Type: 
  Country: None (occurrence: None)
  Receive Date: 20041203
  Receipt Date: 20041119
  Transmission Date: 20050328
  Serious: Yes (Other)
  Sender: FDA-Public Use
  Company Number: US-NOVOPROD-240646

PATIENT
  Sex: Female

DRUGS (4)
  1. ACTIVELLA [Suspect]
     Indication: HORMONE REPLACEMENT THERAPY
  2. ESTRATEST [Concomitant]
     Indication: HORMONE REPLACEMENT THERAPY
  3. PROVERA [Concomitant]
     Indication: HORMONE REPLACEMENT THERAPY
  4. MEDROXYPROGESTERONE [Concomitant]
     Indication: HORMONE REPLACEMENT THERAPY

REACTIONS (1)
  - SYSTEMIC LUPUS ERYTHEMATOSUS [None]
